FAERS Safety Report 17174327 (Version 1)
Quarter: 2019Q4

REPORT INFORMATION
  Report Type: Spontaneous
  Country: US (occurrence: US)
  Receive Date: 20191126
  Receipt Date: 20191126
  Transmission Date: 20200122
  Serious: No
  Sender: FDA-Public Use
  Company Number: None

PATIENT
  Age: 76 Year
  Sex: Female
  Weight: 74.84 kg

DRUGS (8)
  1. VITAMIN D [Concomitant]
     Active Substance: VITAMIN D NOS
  2. VITAMIN B12 [Concomitant]
     Active Substance: CYANOCOBALAMIN
  3. MINOXIDIL 10MG TABLET [Suspect]
     Active Substance: MINOXIDIL
     Indication: BLOOD PRESSURE MEASUREMENT
     Dosage: ?          QUANTITY:10 MG MILLIGRAM(S);?
     Route: 048
     Dates: start: 20040521
  4. OMEPRAZOLE. [Concomitant]
     Active Substance: OMEPRAZOLE
  5. CLONIDINE. [Concomitant]
     Active Substance: CLONIDINE
  6. ROSUVASTATIN. [Suspect]
     Active Substance: ROSUVASTATIN
  7. TRIAMTERENE. [Concomitant]
     Active Substance: TRIAMTERENE
  8. CARVEDOLOL [Concomitant]

REACTIONS (5)
  - Skin disorder [None]
  - Incorrect dose administered [None]
  - Hair growth abnormal [None]
  - Madarosis [None]
  - Alopecia [None]

NARRATIVE: CASE EVENT DATE: 20040521
